FAERS Safety Report 5160132-X (Version None)
Quarter: 2006Q4

REPORT INFORMATION
  Report Type: 
  Country: None (occurrence: None)
  Receive Date: 20061129
  Receipt Date: 20061120
  Transmission Date: 20070319
  Serious: Yes (Other)
  Sender: FDA-Public Use
  Company Number: GB-NOVOPROD-258766

PATIENT
  Age: 38 Year
  Sex: Female

DRUGS (6)
  1. LEVEMIR [Suspect]
     Indication: DIABETES MELLITUS
     Dosage: 10 IU, QD
     Route: 058
     Dates: start: 20060919
  2. CETIRIZINE HCL [Concomitant]
     Indication: SEASONAL ALLERGY
     Dosage: 10 MG, QD
     Dates: start: 20030101
  3. GLUCOFORMIN [Concomitant]
     Dosage: 3 DF ONCE/DAY
     Dates: start: 20060808
  4. NOVORAPID PENFILL [Concomitant]
     Indication: DIABETES MELLITUS
  5. SALBUTAMOL [Concomitant]
     Indication: ASTHMA
     Route: 055
  6. LEVOTHYROXINE SODIUM [Concomitant]
     Indication: HYPOTHYROIDISM
     Dosage: 100 MG, QD
     Dates: start: 20040101

REACTIONS (3)
  - DEPRESSION [None]
  - PANIC ATTACK [None]
  - PARANOIA [None]
